FAERS Safety Report 23992042 (Version 12)
Quarter: 2025Q2

REPORT INFORMATION
  Report Type: Spontaneous
  Country: US (occurrence: US)
  Receive Date: 20240620
  Receipt Date: 20250401
  Transmission Date: 20250717
  Serious: Yes (Disabling, Other)
  Sender: ROCHE
  Company Number: US-ROCHE-3578638

PATIENT
  Age: 67 Year
  Sex: Female
  Weight: 52.07 kg

DRUGS (23)
  1. AVASTIN [Suspect]
     Active Substance: BEVACIZUMAB
     Indication: Rectal cancer metastatic
     Route: 065
     Dates: start: 20231019
  2. LONSURF [Suspect]
     Active Substance: TIPIRACIL HYDROCHLORIDE\TRIFLURIDINE
     Indication: Rectal cancer metastatic
     Route: 048
     Dates: start: 20231019
  3. LONSURF [Suspect]
     Active Substance: TIPIRACIL HYDROCHLORIDE\TRIFLURIDINE
     Route: 048
     Dates: start: 20231024
  4. LONSURF [Suspect]
     Active Substance: TIPIRACIL HYDROCHLORIDE\TRIFLURIDINE
     Route: 048
  5. ACETAMINOPHEN [Concomitant]
     Active Substance: ACETAMINOPHEN
  6. ALBUTEROL SULFATE [Concomitant]
     Active Substance: ALBUTEROL SULFATE
  7. ALPRAZOLAM [Concomitant]
     Active Substance: ALPRAZOLAM
  8. AMLODIPINE [Concomitant]
     Active Substance: AMLODIPINE BESYLATE
  9. LOSARTAN POTASSIUM [Concomitant]
     Active Substance: LOSARTAN POTASSIUM
  10. ONDANSETRON [Concomitant]
     Active Substance: ONDANSETRON
  11. PERCOCET [Concomitant]
     Active Substance: ACETAMINOPHEN\OXYCODONE HYDROCHLORIDE
  12. PREGABALIN [Concomitant]
     Active Substance: PREGABALIN
  13. FOLIC ACID [Concomitant]
     Active Substance: FOLIC ACID
  14. CYANOCOBALAMIN [Concomitant]
     Active Substance: CYANOCOBALAMIN
  15. LOPERAMIDE [Concomitant]
     Active Substance: LOPERAMIDE
  16. MEDROL [Concomitant]
     Active Substance: METHYLPREDNISOLONE
  17. DIETARY SUPPLEMENT\HERBALS\MILK THISTLE [Concomitant]
     Active Substance: MILK THISTLE
  18. PREDNISONE [Concomitant]
     Active Substance: PREDNISONE
  19. MONTELUKAST [Concomitant]
     Active Substance: MONTELUKAST
  20. PROCHLORPERAZINE MALEATE [Concomitant]
     Active Substance: PROCHLORPERAZINE MALEATE
  21. LIDOCAINE\PRILOCAINE [Concomitant]
     Active Substance: LIDOCAINE\PRILOCAINE
  22. IPRATROPIUM [Concomitant]
     Active Substance: IPRATROPIUM
  23. FENOFIBRATE [Concomitant]
     Active Substance: FENOFIBRATE

REACTIONS (25)
  - Decreased appetite [Recovered/Resolved]
  - Fatigue [Unknown]
  - Hypomagnesaemia [Unknown]
  - Bronchitis [Unknown]
  - Cytopenia [Not Recovered/Not Resolved]
  - Performance status decreased [Unknown]
  - Proteinuria [Unknown]
  - Flatulence [Unknown]
  - Bowel movement irregularity [Unknown]
  - Haemorrhoids [Unknown]
  - Asthenia [Unknown]
  - Pain [Unknown]
  - Dyspnoea exertional [Unknown]
  - Arthralgia [Unknown]
  - Hyperkalaemia [Unknown]
  - Bone pain [Unknown]
  - Headache [Not Recovered/Not Resolved]
  - Nervousness [Unknown]
  - Anxiety [Unknown]
  - Platelet count decreased [Not Recovered/Not Resolved]
  - White blood cell count decreased [Recovered/Resolved]
  - Dizziness [Unknown]
  - Abdominal pain upper [Not Recovered/Not Resolved]
  - Haemoglobin decreased [Unknown]
  - Pneumonia [Unknown]

NARRATIVE: CASE EVENT DATE: 20231110
